FAERS Safety Report 9725458 (Version 3)
Quarter: 2013Q4

REPORT INFORMATION
  Report Type: Report from Study
  Country: DE (occurrence: DE)
  Receive Date: 20131203
  Receipt Date: 20131206
  Transmission Date: 20140711
  Serious: Yes (Hospitalization)
  Sender: FDA-Public Use
  Company Number: DE-BAYER-2012-108687

PATIENT
  Age: 25 Year
  Sex: Female

DRUGS (2)
  1. EXTAVIA [Suspect]
     Indication: MULTIPLE SCLEROSIS
     Dosage: 1 ML, QOD
     Route: 058
     Dates: start: 20120515
  2. EXTAVIA [Suspect]
     Indication: MULTIPLE SCLEROSIS
     Dosage: 1 ML, QOD
     Route: 058
     Dates: start: 20121024

REACTIONS (6)
  - Sinusitis [Recovered/Resolved]
  - Purulent discharge [Recovered/Resolved]
  - Injection site inflammation [Recovered/Resolved]
  - Oral herpes [Recovered/Resolved]
  - Lip blister [Recovered/Resolved]
  - Infection [Not Recovered/Not Resolved]
